FAERS Safety Report 7612131-3 (Version None)
Quarter: 2011Q3

REPORT INFORMATION
  Report Type: 
  Country: None (occurrence: None)
  Receive Date: 20110715
  Receipt Date: 20110711
  Transmission Date: 20111222
  Serious: Yes (Other)
  Sender: FDA-Public Use
  Company Number: US-PFIZER INC-2011156759

PATIENT
  Sex: Male
  Weight: 12.698 kg

DRUGS (2)
  1. COSOPT [Concomitant]
     Indication: GLAUCOMA
     Dosage: UNK
  2. PHOSPHOLINE IODIDE [Suspect]
     Indication: GLAUCOMA
     Dosage: UNK, 2X/DAY
     Dates: start: 20110301, end: 20110701

REACTIONS (1)
  - VISUAL ACUITY REDUCED [None]
